FAERS Safety Report 16110501 (Version 2)
Quarter: 2019Q2

REPORT INFORMATION
  Report Type: Report from Study
  Country: CA (occurrence: CA)
  Receive Date: 20190325
  Receipt Date: 20190528
  Transmission Date: 20190711
  Serious: Yes (Hospitalization, Other)
  Sender: FDA-Public Use
  Company Number: CA-BRISTOL-MYERS SQUIBB COMPANY-BMS-2018-083472

PATIENT
  Age: 60 Year
  Sex: Male

DRUGS (2)
  1. PLAQUENIL                          /00072602/ [Concomitant]
     Active Substance: HYDROXYCHLOROQUINE DIPHOSPHATE
     Indication: PRODUCT USED FOR UNKNOWN INDICATION
     Route: 065
  2. ABATACEPT [Suspect]
     Active Substance: ABATACEPT
     Indication: POLYARTHRITIS
     Dosage: 125 MG, QWK
     Route: 058
     Dates: start: 20180906, end: 20181230

REACTIONS (6)
  - Spinal cord disorder [Unknown]
  - Fall [Unknown]
  - Device use issue [Not Recovered/Not Resolved]
  - Spinal fracture [Unknown]
  - Oedema peripheral [Unknown]
  - Back injury [Unknown]

NARRATIVE: CASE EVENT DATE: 20180911
